FAERS Safety Report 6724710-6 (Version None)
Quarter: 2010Q2

REPORT INFORMATION
  Report Type: 
  Country: None (occurrence: None)
  Receive Date: 20100513
  Receipt Date: 20100507
  Transmission Date: 20101027
  Serious: Yes (Hospitalization)
  Sender: FDA-Public Use
  Company Number: NO-MERCK-1005NOR00002

PATIENT
  Age: 70 Year
  Sex: Male

DRUGS (3)
  1. PROSCAR [Suspect]
     Indication: BENIGN PROSTATIC HYPERPLASIA
     Route: 048
  2. METOPROLOL TARTRATE [Concomitant]
     Route: 065
  3. ASPIRIN AND MAGNESIUM OXIDE [Concomitant]
     Route: 065

REACTIONS (1)
  - CARDIAC ARREST [None]
